FAERS Safety Report 5919751-2 (Version None)
Quarter: 2008Q4

REPORT INFORMATION
  Report Type: 
  Country: None (occurrence: None)
  Receive Date: 20081015
  Receipt Date: 20081005
  Transmission Date: 20090506
  Serious: Yes (Hospitalization, Other)
  Sender: FDA-Public Use
  Company Number: US-PFIZER INC-2008083679

PATIENT
  Sex: Female
  Weight: 73.636 kg

DRUGS (2)
  1. LIPITOR [Suspect]
     Indication: BLOOD CHOLESTEROL
     Dates: start: 20080922
  2. CODEINE SUL TAB [Suspect]

REACTIONS (10)
  - ASTHMA [None]
  - BRONCHITIS [None]
  - DRUG HYPERSENSITIVITY [None]
  - DYSPNOEA [None]
  - HYPOAESTHESIA [None]
  - ILL-DEFINED DISORDER [None]
  - PARAESTHESIA [None]
  - SWOLLEN TONGUE [None]
  - THROAT TIGHTNESS [None]
  - UPPER RESPIRATORY TRACT INFECTION [None]
